FAERS Safety Report 7555813-4 (Version None)
Quarter: 2011Q2

REPORT INFORMATION
  Report Type: 
  Country: None (occurrence: None)
  Receive Date: 20110618
  Receipt Date: 20110610
  Transmission Date: 20111010
  Serious: Yes (Life-Threatening)
  Sender: FDA-Public Use
  Company Number: GB-BAYER-2011-051583

PATIENT
  Age: 29 Year
  Sex: Female

DRUGS (5)
  1. TRAMADOL HCL [Concomitant]
     Dosage: UNK
     Dates: start: 20110523
  2. VENTOLIN HFA [Concomitant]
     Dosage: UNK
     Dates: start: 20090101
  3. CLENIL [Concomitant]
     Dosage: UNK
     Dates: start: 20000101
  4. OMEPRAZOLE [Concomitant]
     Dosage: UNK
     Dates: start: 20110524, end: 20110524
  5. NAPROXEN SODIUM [Suspect]
     Indication: PRODUCT USED FOR UNKNOWN INDICATION
     Dosage: 500 MG, UNK
     Route: 048
     Dates: start: 20110524, end: 20110524

REACTIONS (4)
  - LIP SWELLING [None]
  - DYSPNOEA [None]
  - SWOLLEN TONGUE [None]
  - WHEEZING [None]
